FAERS Safety Report 4492505-2 (Version None)
Quarter: 2004Q4

REPORT INFORMATION
  Report Type: 
  Country: None (occurrence: None)
  Receive Date: 20041029
  Receipt Date: 20041022
  Transmission Date: 20050328
  Serious: No
  Sender: FDA-Public Use
  Company Number: DSA_25222_2004

PATIENT
  Age: 8 Month
  Sex: Male
  Weight: 2.29 kg

DRUGS (6)
  1. DILTIAZEM [Suspect]
     Dosage: 60 MG Q DAY TRAN-P
     Route: 064
  2. DILTIAZEM [Suspect]
     Dosage: 180 MG Q DAY TRAN-P
     Route: 064
  3. SILDENAFIL [Suspect]
     Dosage: 50 MG Q DAY TRAN-P; A FEW WEEKS
     Route: 064
  4. SILDENAFIL [Suspect]
     Dosage: 150 MG Q DAY TRAN-P
     Route: 064
  5. SILDENAFIL [Suspect]
     Dosage: 150 MG Q DAY TRAN-P; A FEW WEEKS
     Route: 064
  6. L-ARGININE [Suspect]
     Dosage: 3 G Q DAY TRAN-P; A FEW WEEKS
     Route: 064

REACTIONS (5)
  - CAESAREAN SECTION [None]
  - DRUG EXPOSURE DURING PREGNANCY [None]
  - FAILED INDUCTION OF LABOUR [None]
  - FOETAL GROWTH RETARDATION [None]
  - SMALL FOR DATES BABY [None]
